FAERS Safety Report 24592552 (Version 2)
Quarter: 2024Q4

REPORT INFORMATION
  Report Type: Spontaneous
  Country: US (occurrence: US)
  Receive Date: 20241108
  Receipt Date: 20241115
  Transmission Date: 20250115
  Serious: No
  Sender: NOVA LABORATORIES LIMITED
  Company Number: US-Nova Laboratories Limited-2164672

PATIENT
  Age: 24 Month
  Sex: Female

DRUGS (1)
  1. PURIXAN [Suspect]
     Active Substance: MERCAPTOPURINE
     Indication: Product storage error

REACTIONS (1)
  - Product storage error [Unknown]
